FAERS Safety Report 6144213-X (Version None)
Quarter: 2009Q2

REPORT INFORMATION
  Report Type: 
  Country: None (occurrence: None)
  Receive Date: 20090406
  Receipt Date: 20090324
  Transmission Date: 20091009
  Serious: Yes (Other)
  Sender: FDA-Public Use
  Company Number: PHHO2009JP03476

PATIENT

DRUGS (2)
  1. TASIGNA [Suspect]
     Indication: GASTROINTESTINAL STROMAL TUMOUR
     Dosage: UNK
     Route: 048
     Dates: start: 20090310, end: 20090310
  2. TASIGNA [Suspect]
     Dosage: UNK
     Route: 048
     Dates: start: 20090311

REACTIONS (1)
  - ELECTROCARDIOGRAM T WAVE INVERSION [None]
